FAERS Safety Report 6355527-2 (Version None)
Quarter: 2009Q3

REPORT INFORMATION
  Report Type: 
  Country: None (occurrence: None)
  Receive Date: 20090914
  Receipt Date: 20090910
  Transmission Date: 20100115
  Serious: Yes (Death, Other)
  Sender: FDA-Public Use
  Company Number: PHEH2009US09429

PATIENT
  Sex: Male

DRUGS (2)
  1. GLEEVEC [Suspect]
  2. HYDREA [Concomitant]

REACTIONS (5)
  - DEATH [None]
  - KLEBSIELLA BACTERAEMIA [None]
  - LEUKOCYTOSIS [None]
  - PSEUDOMONAS INFECTION [None]
  - WHITE BLOOD CELL COUNT DECREASED [None]
